FAERS Safety Report 16307573 (Version 1)
Quarter: 2019Q2

REPORT INFORMATION
  Report Type: Report from Study
  Country: IT (occurrence: IT)
  Receive Date: 20190514
  Receipt Date: 20190514
  Transmission Date: 20190711
  Serious: Yes (Other)
  Sender: FDA-Public Use
  Company Number: IT-AMGEN-ITANI2019075165

PATIENT
  Age: 44 Year
  Sex: Female

DRUGS (1)
  1. ETANERCEPT [Suspect]
     Active Substance: ETANERCEPT
     Indication: RHEUMATOID ARTHRITIS
     Dosage: 50 MILLIGRAM, QWK
     Route: 058
     Dates: start: 20070101, end: 20180701

REACTIONS (2)
  - Papilloma viral infection [Not Recovered/Not Resolved]
  - Cervix disorder [Not Recovered/Not Resolved]

NARRATIVE: CASE EVENT DATE: 20180701
